FAERS Safety Report 11125162 (Version 1)
Quarter: 2015Q2

REPORT INFORMATION
  Report Type: Report from Study
  Country: CO (occurrence: CO)
  Receive Date: 20150520
  Receipt Date: 20150520
  Transmission Date: 20150821
  Serious: Yes (Other)
  Sender: FDA-Public Use
  Company Number: PHHY2013CO036347

PATIENT
  Age: 64 Year
  Sex: Male

DRUGS (1)
  1. SANDOSTATIN LAR DEPOT [Suspect]
     Active Substance: OCTREOTIDE ACETATE
     Indication: NEUROENDOCRINE TUMOUR
     Dosage: UNK
     Route: 030
     Dates: start: 20130305

REACTIONS (5)
  - Asphyxia [Unknown]
  - Mass [Unknown]
  - Dizziness [Unknown]
  - Abnormal behaviour [Unknown]
  - Pain [Unknown]

NARRATIVE: CASE EVENT DATE: 20130401
